FAERS Safety Report 25982825 (Version 1)
Quarter: 2025Q4

REPORT INFORMATION
  Report Type: Spontaneous
  Country: US (occurrence: US)
  Receive Date: 20251031
  Receipt Date: 20251031
  Transmission Date: 20260118
  Serious: No
  Sender: TEVA
  Company Number: US-TEVA-VS-3385044

PATIENT

DRUGS (2)
  1. ESTRADIOL [Suspect]
     Active Substance: ESTRADIOL
     Indication: Hot flush
     Dosage: PILLS
     Route: 065
     Dates: start: 2025
  2. PROGESTERONE [Suspect]
     Active Substance: PROGESTERONE
     Indication: Hot flush
     Route: 065
     Dates: start: 2025

REACTIONS (2)
  - Feeling abnormal [Unknown]
  - Drug effect less than expected [Unknown]

NARRATIVE: CASE EVENT DATE: 20250101
